FAERS Safety Report 8925839 (Version 1)
Quarter: 2012Q4

REPORT INFORMATION
  Report Type: 
  Country: CA (occurrence: CA)
  Receive Date: 20121126
  Receipt Date: 20121126
  Transmission Date: 20130627
  Serious: Yes (Other)
  Sender: FDA-Public Use
  Company Number: CA-ASTRAZENECA-2012SE86602

PATIENT
  Age: 67 Year
  Sex: Female

DRUGS (3)
  1. SEROQUEL XR [Suspect]
     Route: 048
  2. INVEGA [Interacting]
     Route: 048
  3. INVEGA [Interacting]
     Route: 048

REACTIONS (5)
  - Drug interaction [Unknown]
  - Psychotic disorder [Unknown]
  - Hypersomnia [Unknown]
  - Lethargy [Unknown]
  - Syncope [Unknown]
